FAERS Safety Report 7541766-1 (Version None)
Quarter: 2011Q2

REPORT INFORMATION
  Report Type: 
  Country: None (occurrence: None)
  Receive Date: 20110613
  Receipt Date: 20110602
  Transmission Date: 20111010
  Serious: Yes (Other)
  Sender: FDA-Public Use
  Company Number: DE-JNJFOC-20110511166

PATIENT
  Age: 58 Year
  Sex: Male

DRUGS (4)
  1. LEVOFLOXACIN [Suspect]
     Route: 048
     Dates: start: 20110517
  2. FLUTICASONE PROPIONATE [Concomitant]
     Route: 065
  3. CILOXAN [Suspect]
     Indication: PRODUCT USED FOR UNKNOWN INDICATION
     Route: 065
  4. LEVOFLOXACIN [Suspect]
     Indication: SINUSITIS
     Route: 048
     Dates: start: 20110517

REACTIONS (5)
  - HYPOAESTHESIA FACIAL [None]
  - RASH [None]
  - SENSATION OF FOREIGN BODY [None]
  - OEDEMA MUCOSAL [None]
  - BRONCHIAL IRRITATION [None]
